FAERS Safety Report 6699810-X (Version None)
Quarter: 2010Q2

REPORT INFORMATION
  Report Type: 
  Country: None (occurrence: None)
  Receive Date: 20100428
  Receipt Date: 20090724
  Transmission Date: 20101027
  Serious: No
  Sender: FDA-Public Use
  Company Number: A0829477A

PATIENT
  Age: 66 Year
  Sex: Male
  Weight: 136 kg

DRUGS (2)
  1. LUXIQ [Suspect]
     Dosage: 0PCT PER DAY
     Route: 061
     Dates: end: 20090101
  2. FLUOXETINE [Concomitant]
     Indication: DEPRESSION
     Dosage: 20MG PER DAY
     Route: 048

REACTIONS (6)
  - APPLICATION SITE IRRITATION [None]
  - APPLICATION SITE SCAR [None]
  - APPLICATION SITE ULCER [None]
  - APPLICATION SITE VESICLES [None]
  - DRUG ADMINISTERED AT INAPPROPRIATE SITE [None]
  - INAPPROPRIATE SCHEDULE OF DRUG ADMINISTRATION [None]
